FAERS Safety Report 4933608-5 (Version None)
Quarter: 2006Q1

REPORT INFORMATION
  Report Type: 
  Country: None (occurrence: None)
  Receive Date: 20060301
  Receipt Date: 20060216
  Transmission Date: 20060701
  Serious: Yes (Other)
  Sender: FDA-Public Use
  Company Number: 2006024794

PATIENT
  Age: 69 Year
  Sex: Female
  Weight: 51.7101 kg

DRUGS (15)
  1. VFEND [Suspect]
     Indication: ASPERGILLOSIS
     Dosage: 80 MG (40 MG, 2 IN 1 D), ORAL
     Route: 048
     Dates: start: 20051022, end: 20060211
  2. XOPENEX [Concomitant]
  3. SPIRVA (CALAMINE, CAMPHOR, DIPHENHYDRAMINE) [Concomitant]
  4. ADVAIR DISKUS 100/50 [Concomitant]
  5. COLACE (DOCUSATE SODIUM) [Concomitant]
  6. METOPROLOL (METOPROLOL) [Concomitant]
  7. MAGNESIUM OXIDE (MAGNESIUM OXIDE) [Concomitant]
  8. LEVAQUIN [Concomitant]
  9. ROCEPHIN [Concomitant]
  10. DECADRON [Concomitant]
  11. XANAX [Concomitant]
  12. ACETAMINOPHEN [Concomitant]
  13. VANCOMYCIN [Concomitant]
  14. ZOSYN [Concomitant]
  15. LEVOPHED [Concomitant]

REACTIONS (9)
  - ATRIAL FIBRILLATION [None]
  - GASTRIC ULCER HAEMORRHAGE [None]
  - HEPATIC FAILURE [None]
  - INCORRECT DRUG ADMINISTRATION DURATION [None]
  - INTERNATIONAL NORMALISED RATIO INCREASED [None]
  - MALAISE [None]
  - MULTI-ORGAN FAILURE [None]
  - RENAL FAILURE [None]
  - WHITE BLOOD CELL COUNT INCREASED [None]
